FAERS Safety Report 20337829 (Version 5)
Quarter: 2024Q2

REPORT INFORMATION
  Report Type: Spontaneous
  Country: GB (occurrence: GB)
  Receive Date: 20220114
  Receipt Date: 20240409
  Transmission Date: 20240716
  Serious: Yes (Other)
  Sender: FDA-Public Use
  Company Number: GB-BAXTER-2020BAX017657

PATIENT
  Age: 51 Year
  Sex: Male
  Weight: 53 kg

DRUGS (192)
  1. SODIUM CHLORIDE [Suspect]
     Active Substance: SODIUM CHLORIDE
     Indication: Medication dilution
     Dosage: 0.9%, DOSAGE TEXT: 0.9%, PHARMACEUTICAL FORM (DOSAGE FORM): SOLUTION FOR INJECTION
     Route: 065
     Dates: start: 20200825, end: 20200825
  2. SODIUM CHLORIDE [Suspect]
     Active Substance: SODIUM CHLORIDE
     Dosage: 0.9%, DOSAGE TEXT: 0.9% (UNKNOWN), PHARMACEUTICAL FORM (DOSAGE FORM): SOLUTION FOR INFUSION
     Route: 042
     Dates: start: 20200825, end: 20200825
  3. SODIUM CHLORIDE [Suspect]
     Active Substance: SODIUM CHLORIDE
     Dosage: UNKNOWN
     Route: 065
     Dates: start: 20200825, end: 20200825
  4. SODIUM CHLORIDE [Suspect]
     Active Substance: SODIUM CHLORIDE
     Dosage: UNK
     Route: 042
     Dates: start: 20200825, end: 20200825
  5. SODIUM CHLORIDE [Suspect]
     Active Substance: SODIUM CHLORIDE
     Dosage: UNKNOWN
     Route: 042
     Dates: start: 20200825
  6. SODIUM CHLORIDE [Suspect]
     Active Substance: SODIUM CHLORIDE
     Dosage: UNK
     Route: 065
  7. SODIUM CHLORIDE [Suspect]
     Active Substance: SODIUM CHLORIDE
     Dosage: UNK
     Route: 065
  8. SODIUM CHLORIDE [Suspect]
     Active Substance: SODIUM CHLORIDE
     Dosage: 3 DF ONCE A DAY
     Route: 065
  9. APREPITANT [Suspect]
     Active Substance: APREPITANT
     Indication: Supportive care
     Dosage: 125 MG (MILLIGRAM), (DOSAGE TEXT: 80 MILLIGRAM;)
     Route: 065
     Dates: start: 20200825
  10. APREPITANT [Suspect]
     Active Substance: APREPITANT
     Indication: Mineral supplementation
     Dosage: 125 MG (MILLIGRAM), ONCE DAILY (DOSAGE TEXT: 125 MG, 1D)
     Route: 065
     Dates: start: 20200825
  11. APREPITANT [Suspect]
     Active Substance: APREPITANT
     Dosage: 1 UNK, QD
     Route: 065
  12. APREPITANT [Suspect]
     Active Substance: APREPITANT
     Dosage: D2 (80 MG), IN TOTAL
     Route: 065
     Dates: start: 20200826
  13. APREPITANT [Suspect]
     Active Substance: APREPITANT
     Dosage: D1 (125 MG)/125 MG, 1X; IN TOTAL/D1
     Route: 065
     Dates: start: 20200825
  14. APREPITANT [Suspect]
     Active Substance: APREPITANT
     Dosage: 80 MG, (D2) SINGLE (IN TOTAL)
     Route: 065
     Dates: start: 20200825
  15. APREPITANT [Suspect]
     Active Substance: APREPITANT
     Dosage: D1 (125 MG)
     Route: 065
     Dates: start: 20200826
  16. APREPITANT [Suspect]
     Active Substance: APREPITANT
     Dosage: D1 (125 MG)/125 MG, 1X; IN TOTAL/D1
     Route: 065
     Dates: start: 20200825
  17. APREPITANT [Suspect]
     Active Substance: APREPITANT
     Dosage: 125 MG, (D1 (125 MG)/125 MG, 1X; IN TOTAL/D1)
     Route: 065
     Dates: start: 20200825
  18. APREPITANT [Suspect]
     Active Substance: APREPITANT
     Dosage: D2 (80MG), IN TOTAL
     Route: 065
     Dates: start: 20200826
  19. APREPITANT [Suspect]
     Active Substance: APREPITANT
     Dosage: 125 MG (125 MG (D1) SINGLE (D1 (125 MG)/125 MG,1X IN TOTAL)
     Route: 065
     Dates: start: 20200826
  20. APREPITANT [Suspect]
     Active Substance: APREPITANT
     Dosage: 80 MILLIGRAM,PRN
     Route: 065
  21. APREPITANT [Suspect]
     Active Substance: APREPITANT
     Dosage: 125 MILLIGRAM,PRN
     Route: 065
  22. APREPITANT [Suspect]
     Active Substance: APREPITANT
     Dosage: 80 MG, (DOSAGE TEXT: 80 UNK)
     Route: 065
  23. APREPITANT [Suspect]
     Active Substance: APREPITANT
     Dosage: 15 MILLIGRAM(DOSAGE TEXT: 80 MILLIGRAM)
     Route: 065
     Dates: start: 20200825
  24. CALCIUM [Suspect]
     Active Substance: CALCIUM
     Indication: Mineral supplementation
     Dosage: TABLET, PHARMACEUTICAL FORM: TABLET (245)
     Route: 065
  25. CALCIUM [Suspect]
     Active Substance: CALCIUM
     Indication: Nutritional supplementation
     Dosage: TABLET. UNK, QD, (UNK UNK, QD), PHARMACEUTICAL FORM: TABLET (245)
     Route: 065
  26. CALCIUM [Suspect]
     Active Substance: CALCIUM
     Indication: Mineral supplementation
     Dosage: TABLET. UNK, QD, (UNK UNK, QD), PHARMACEUTICAL FORM: TABLET (245)
     Route: 065
  27. CALCIUM [Suspect]
     Active Substance: CALCIUM
     Indication: Nutritional supplementation
     Dosage: TABLET. UNK, QD, (UNK UNK, QD)PHARMACEUTICAL FORM: TABLET (245)
     Route: 065
  28. CALCIUM [Suspect]
     Active Substance: CALCIUM
     Dosage: 1 UNK, QD, PHARMACEUTICAL FORM: TABLET (245)
     Route: 065
  29. CALCIUM [Suspect]
     Active Substance: CALCIUM
     Dosage: 8 DF, QD, PHARMACEUTICAL FORM: TABLET (245)
     Route: 065
  30. CALCIUM [Suspect]
     Active Substance: CALCIUM
     Dosage: 1 DF, QD, PHARMACEUTICAL FORM: TABLET (245)
     Route: 065
  31. CALCIUM [Suspect]
     Active Substance: CALCIUM
     Dosage: 2 DF, QD, ((2 DF, QD (TABLET), TABLET 2UNK))  PHARMACEUTICAL FORM: TABLET (245)
     Route: 065
  32. CALCIUM [Suspect]
     Active Substance: CALCIUM
     Dosage: 1 DOSAGE FORM, ONCE A DAY
     Route: 065
  33. CALCIUM [Suspect]
     Active Substance: CALCIUM
     Dosage: 8 DF, QD, DOSAGE TEXT: TABLET
     Route: 065
  34. CALCIUM [Suspect]
     Active Substance: CALCIUM
     Dosage: 1 DF, QD, TABLET
     Route: 065
  35. CALCIUM [Suspect]
     Active Substance: CALCIUM
     Dosage: 1 UNK, QD
     Route: 065
  36. CALCIUM [Suspect]
     Active Substance: CALCIUM
     Dosage: 1 DF, QD
     Route: 065
  37. CALCIUM [Suspect]
     Active Substance: CALCIUM
     Dosage: 2 DF, QD, DOSAGE TEXT: 2 DF, QD, PHARMACEUTICAL DOSAGE FORM: TABLET
     Route: 065
  38. CALCIUM [Suspect]
     Active Substance: CALCIUM
     Dosage: UNK, QD, (UNK UNK, QD)
     Route: 065
  39. CALCIUM [Suspect]
     Active Substance: CALCIUM
     Dosage: UNK, QD, (UNK UNK, QD)
     Route: 065
  40. CALCIUM [Suspect]
     Active Substance: CALCIUM
     Dosage: PHARMACEUTICAL FORM: TABLET
     Route: 048
  41. CALCIUM [Suspect]
     Active Substance: CALCIUM
     Dosage: UNK, PHARMACEUTICAL FORM: TABLET
     Route: 048
  42. CALCIUM [Suspect]
     Active Substance: CALCIUM
     Dosage: 1 DOSAGE FORMS, QD
     Route: 065
  43. CALCIUM [Suspect]
     Active Substance: CALCIUM
     Dosage: 8 DOSAGE FORMS, PRN
     Route: 065
  44. CALCIUM [Suspect]
     Active Substance: CALCIUM
     Dosage: 1 DOSAGE FORMS, PRN
     Route: 065
  45. CALCIUM [Suspect]
     Active Substance: CALCIUM
     Dosage: 8 DF ONCE DAILY, (DOSAGE TEXT: 8 UNK)
     Route: 048
  46. CALCIUM [Suspect]
     Active Substance: CALCIUM
     Dosage: 1 DOSAGE FORM ONCE DAILY (DOSAGE TEXT: 1 DF, QD (UNK, QD, (UNK UNK, QD)), PHARMACEUTICAL DOSAGE FROM
     Route: 048
  47. CALCIUM [Suspect]
     Active Substance: CALCIUM
     Dosage: (DOSAGE TEXT: UNK; ;)
     Route: 048
  48. CALCIUM [Suspect]
     Active Substance: CALCIUM
     Dosage: 2 DF, QD
     Route: 065
  49. CALCIUM\VITAMIN D [Suspect]
     Active Substance: CALCIUM\VITAMIN D
     Indication: Mineral supplementation
     Dosage: UNK UNK, QD, 8 DF, QD CHEWABLE TABLET
     Route: 065
  50. CALCIUM\VITAMIN D [Suspect]
     Active Substance: CALCIUM\VITAMIN D
     Dosage: UNK, QD (UNK UNK, QD), PHARMACEUTICAL FORM: 245 (TABLET)
     Route: 065
  51. CALCIUM\VITAMIN D [Suspect]
     Active Substance: CALCIUM\VITAMIN D
     Dosage: DOSE: 1 (UNSPECIFIED UNIT)
     Route: 065
  52. CALCIUM\VITAMIN D [Suspect]
     Active Substance: CALCIUM\VITAMIN D
     Dosage: 2 DF, QD
     Route: 065
  53. CALCIUM\VITAMIN D [Suspect]
     Active Substance: CALCIUM\VITAMIN D
     Dosage: 1 DF ONCE DAILY, DOSAGE TEXT: 1 DF, QD
     Route: 065
  54. CALCIUM\VITAMIN D [Suspect]
     Active Substance: CALCIUM\VITAMIN D
     Dosage: 1 DF, DOSE: 1 (UNSPECIFIED UNIT), PHARMACEUTICAL FORM: TABLET
     Route: 065
  55. CALCIUM\VITAMIN D [Suspect]
     Active Substance: CALCIUM\VITAMIN D
     Dosage: PHARMACEUTICAL FORM: TABLET, 2 DF, QD
     Route: 065
  56. CALCIUM\VITAMIN D [Suspect]
     Active Substance: CALCIUM\VITAMIN D
     Dosage: 8 DF, QD,  PHARMACEUTICAL FORM: TABLET.
     Route: 065
  57. CALCIUM\VITAMIN D [Suspect]
     Active Substance: CALCIUM\VITAMIN D
     Dosage: 2 DOSAGE FORM 1 DAY, (DOSAGE TEXT: 2 UNK)
     Route: 065
  58. CISPLATIN [Suspect]
     Active Substance: CISPLATIN
     Indication: Germ cell neoplasm
     Dosage: 79 MG (MILLIGRAM), DOSAGE TEXT: 79 MG IN 1 LITER (NOT SPECIFIED) (79 MG); 1 SEPARATE DOSAGE
     Route: 065
     Dates: start: 20200825
  59. CISPLATIN [Suspect]
     Active Substance: CISPLATIN
     Dosage: 79 MG (IN 1 LITER)
     Route: 065
  60. CHOLECALCIFEROL [Suspect]
     Active Substance: CHOLECALCIFEROL
     Indication: Mineral supplementation
     Dosage: TABLET(1D) / UNK, QD (TABLET(1D)), 1 DF, QD, PHARMACEUTICAL FORM: TABLET (245)
     Route: 065
  61. CHOLECALCIFEROL [Suspect]
     Active Substance: CHOLECALCIFEROL
     Indication: Mineral supplementation
     Dosage: 8 DF, QD (DOSAGE TEXT: 8 DF, QD)
     Route: 065
  62. CHOLECALCIFEROL [Suspect]
     Active Substance: CHOLECALCIFEROL
     Dosage: UNK, QD, (UNK UNK, QD), TABLET
     Route: 065
  63. CHOLECALCIFEROL [Suspect]
     Active Substance: CHOLECALCIFEROL
     Dosage: TABLET(1D) / UNK, QD (TABLET(1D)), PHARMACEUTICAL FORM: TABLET (245)
     Route: 065
  64. CHOLECALCIFEROL [Suspect]
     Active Substance: CHOLECALCIFEROL
     Dosage: 2 DOSAGE FORM, ONCE A DAY(2 DF, QD)
     Route: 065
  65. CHOLECALCIFEROL [Suspect]
     Active Substance: CHOLECALCIFEROL
     Dosage: 2 DF, QD, DOSAGE FORM: TABLET
     Route: 065
  66. CHOLECALCIFEROL [Suspect]
     Active Substance: CHOLECALCIFEROL
     Dosage: 8 DF, QD, DOSAGE FORM: TABLET
     Route: 065
  67. CHOLECALCIFEROL [Suspect]
     Active Substance: CHOLECALCIFEROL
     Dosage: 8 DF, QD, DOSAGE FORM: TABLET
     Route: 065
  68. CHOLECALCIFEROL [Suspect]
     Active Substance: CHOLECALCIFEROL
     Dosage: 8 DF, QD, DOSAGE FORM: TABLET
     Route: 065
  69. CHOLECALCIFEROL [Suspect]
     Active Substance: CHOLECALCIFEROL
     Dosage: 1 DOSAGE FORM ONCE DAILY (DSAGE TEXT: 1 DF, QD, (QD(UNK, QD, (UNK UNK, QD) ))
     Route: 065
  70. CHOLECALCIFEROL [Suspect]
     Active Substance: CHOLECALCIFEROL
     Dosage: DOSE: 1 (UNSPECIFIED UNIT); TABLET
     Route: 065
  71. CHOLECALCIFEROL [Suspect]
     Active Substance: CHOLECALCIFEROL
     Dosage: UNK UNK, QD(TABLET(1D) / UNK, QD (TABLET(1D)) )
     Route: 065
  72. CHOLECALCIFEROL [Suspect]
     Active Substance: CHOLECALCIFEROL
     Dosage: 1 DF ONCE DAILY, DOSAGE TEXT: 1 DF
     Route: 065
  73. CHOLECALCIFEROL [Suspect]
     Active Substance: CHOLECALCIFEROL
     Dosage: UNK, QD, (UNK UNK, QD)
     Route: 065
  74. CHOLECALCIFEROL [Suspect]
     Active Substance: CHOLECALCIFEROL
     Dosage: 1 DF, QD
     Route: 065
  75. CHOLECALCIFEROL [Suspect]
     Active Substance: CHOLECALCIFEROL
     Dosage: 8 DOSAGE FORMS,PRN
     Route: 065
  76. CHOLECALCIFEROL [Suspect]
     Active Substance: CHOLECALCIFEROL
     Dosage: 2 DOSAGE FORMS,PRN
     Route: 065
  77. CHOLECALCIFEROL [Suspect]
     Active Substance: CHOLECALCIFEROL
     Dosage: 1 DOSAGE FORMS,PRN
     Route: 065
  78. CHOLECALCIFEROL [Suspect]
     Active Substance: CHOLECALCIFEROL
     Dosage: ONCE DAILY (DOSAGE TEXT: UNK, QD(TABLET(1D) / UNK, QD (TABLET(1D)) ))
     Route: 065
  79. DEXAMETHASONE [Suspect]
     Active Substance: DEXAMETHASONE
     Indication: Supportive care
     Dosage: 8MG, QD, PHARMACEUTICAL FORM: ORAL SOLUTION
     Route: 048
     Dates: start: 20200825
  80. DEXAMETHASONE [Suspect]
     Active Substance: DEXAMETHASONE
     Dosage: 8MG, QD, PHARMACEUTICAL FORM: TABLET
     Route: 048
     Dates: start: 20200825
  81. DEXAMETHASONE [Suspect]
     Active Substance: DEXAMETHASONE
     Dosage: 30 MG ONCE DAILY
     Route: 048
     Dates: start: 20200825
  82. DEXAMETHASONE [Suspect]
     Active Substance: DEXAMETHASONE
     Dosage: 8 MILLIGRAM,PRN
     Route: 048
     Dates: start: 20200825
  83. DEXAMETHASONE [Suspect]
     Active Substance: DEXAMETHASONE
     Dosage: 8 MG ONCE DAILY, DOSAGE TEXT: 8 MG, QD (8 MG, 1X/DAY ), DOSAGE FORM: ORAL SOLUTION
     Route: 065
     Dates: start: 20200825
  84. DOMPERIDONE [Suspect]
     Active Substance: DOMPERIDONE
     Indication: Supportive care
     Dosage: 8 MILLIGRAM ONCE DAILY, DOSAGE TEXT: 8 MG, QD(8 MILLIGRAM, QD)
     Route: 048
     Dates: start: 20200825
  85. DOMPERIDONE [Suspect]
     Active Substance: DOMPERIDONE
     Dosage: 30 MG ONCE DAILY, DOSAGE TEXT: 30 MG, QD, 30 MG, QD (PRN (30 MG,1 D)
     Route: 048
     Dates: start: 20200825
  86. DOMPERIDONE [Suspect]
     Active Substance: DOMPERIDONE
     Dosage: UNK
     Route: 065
  87. DOMPERIDONE [Suspect]
     Active Substance: DOMPERIDONE
     Dosage: 30 MILLIGRAM,PRN
     Route: 048
     Dates: start: 20200825
  88. DOMPERIDONE [Suspect]
     Active Substance: DOMPERIDONE
     Dosage: 8 MILLIGRAM,PRN
     Route: 048
     Dates: start: 20200825
  89. ETOPOSIDE [Suspect]
     Active Substance: ETOPOSIDE
     Indication: Germ cell neoplasm
     Dosage: 360 MILLIGRAM,PRN
     Route: 065
     Dates: start: 202007
  90. ETOPOSIDE [Suspect]
     Active Substance: ETOPOSIDE
     Dosage: 360 MG (MILLIGRAM), DOSAGE TEXT: 360 MILLIGRAM, QD (IN 1 LITER 2 BAGS (360 MG))
     Route: 065
     Dates: start: 20200825, end: 20200825
  91. ETOPOSIDE [Suspect]
     Active Substance: ETOPOSIDE
     Dosage: 360 MG (MILLIGRAM), DOSAGE TEXT: 360 MILLIGRAM, QD (IN 1 LITER 2 BAGS (360 MG))
     Route: 065
     Dates: start: 20200825, end: 20200825
  92. ETOPOSIDE [Suspect]
     Active Substance: ETOPOSIDE
     Dosage: 360 MG (MILLIGRAM), DOSAGE TEXT: 360 MILLIGRAM, QD (IN 1 LITER 2 BAGS (360 MG))
     Route: 065
     Dates: start: 20200825, end: 20200825
  93. NAUZELIN [Suspect]
     Active Substance: DOMPERIDONE
     Indication: Supportive care
     Dosage: 30 MG, QD (AS NECESSARY) PRN, PHARMACEUTICAL FORM: TABLET (245)
     Route: 048
     Dates: start: 20200825
  94. NAUZELIN [Suspect]
     Active Substance: DOMPERIDONE
     Dosage: 30 MG, 1D (QD) (AS NECESSARY)
     Route: 048
     Dates: start: 20200825
  95. NAUZELIN [Suspect]
     Active Substance: DOMPERIDONE
     Dosage: 30 MILLIGRAM, QD (30 MG, QD (PRN (30 MG,1 D))
     Route: 048
     Dates: start: 20200825
  96. NAUZELIN [Suspect]
     Active Substance: DOMPERIDONE
     Dosage: UNKNOWN
     Route: 065
  97. NAUZELIN [Suspect]
     Active Substance: DOMPERIDONE
     Dosage: 8 MG, QD(8 MILLIGRAM, QD )
     Route: 048
     Dates: start: 20200825
  98. NAUZELIN [Suspect]
     Active Substance: DOMPERIDONE
     Dosage: 8 MILLIGRAM, QD
     Route: 048
     Dates: start: 20200825
  99. NAUZELIN [Suspect]
     Active Substance: DOMPERIDONE
     Dosage: 8 MILLIGRAM, DOSAGE TEXT: 8 DOSAGE FORM
     Route: 065
     Dates: start: 20200525
  100. NAUZELIN [Suspect]
     Active Substance: DOMPERIDONE
     Dosage: 8 MILLIGRAM, DOSAGE TEXT: 8 DOSAGE FORM
     Route: 065
     Dates: start: 20200825
  101. NICOTINE [Suspect]
     Active Substance: NICOTINE
     Indication: Drug therapy
     Dosage: 21 MG ONCE DAILY, DOSAGE TEXT: 21 MG, QD, PATCH, EVERY 24 HOURS (21 MG,1 D)
     Route: 065
  102. NICOTINE [Suspect]
     Active Substance: NICOTINE
     Dosage: 21 MG, QD, PATCH, EVERY 24 HOURS (21 MG,1 D)
     Route: 065
  103. NICOTINE [Suspect]
     Active Substance: NICOTINE
     Dosage: 21 MILLIGRAM,PRN
     Route: 065
  104. NICOTINE [Suspect]
     Active Substance: NICOTINE
     Dosage: 21 MG, DOSAGE TEXT: 21 MG;
     Route: 065
  105. ONDANSETRON [Suspect]
     Active Substance: ONDANSETRON
     Indication: Supportive care
     Dosage: 16 MILLIGRAM ONCE DAILY, DOSAGE TEXT: 16 MILLIGRAM, QD (FOR 3 DAYS (16 MG,1 D)), (ORODISPERSIBLE FIL
     Route: 048
     Dates: start: 20200825, end: 20200825
  106. ONDANSETRON [Suspect]
     Active Substance: ONDANSETRON
     Dosage: 16 MILLIGRAM,PRN
     Route: 048
     Dates: start: 20200825
  107. PHENYLBUTAZONE [Suspect]
     Active Substance: PHENYLBUTAZONE
     Indication: Hypovitaminosis
     Dosage: UNK MG, QD
     Route: 065
  108. PHENYLBUTAZONE [Suspect]
     Active Substance: PHENYLBUTAZONE
     Indication: Hypovitaminosis
     Dosage: 300 MILLIGRAM ONCE DAILY, DOSAGE TEXT: 300 MG QD
     Route: 065
  109. PHENYLBUTAZONE [Suspect]
     Active Substance: PHENYLBUTAZONE
     Dosage: UNK
     Route: 065
  110. PHENYLBUTAZONE [Suspect]
     Active Substance: PHENYLBUTAZONE
     Dosage: UNK MG, QD
     Route: 065
  111. PHENYLBUTAZONE [Suspect]
     Active Substance: PHENYLBUTAZONE
     Dosage: 300 MILLIGRAM,PRN
     Route: 065
  112. PROPYPHENAZONE [Suspect]
     Active Substance: PROPYPHENAZONE
     Indication: Hypovitaminosis
     Dosage: UNK MG, QD
     Route: 065
  113. PROPYPHENAZONE [Suspect]
     Active Substance: PROPYPHENAZONE
     Indication: Product used for unknown indication
     Dosage: 300 MILLIGRAM, QD
     Route: 065
  114. PROPYPHENAZONE [Suspect]
     Active Substance: PROPYPHENAZONE
     Dosage: UNK MG, QD
     Route: 065
  115. THIAMINE [Suspect]
     Active Substance: THIAMINE
     Indication: Hypovitaminosis
     Dosage: UNKUNK
     Route: 065
  116. THIAMINE [Suspect]
     Active Substance: THIAMINE
     Dosage: 300 MG, QD
     Route: 065
  117. THIAMINE [Suspect]
     Active Substance: THIAMINE
     Dosage: 1 DF, QD, UNK, UNK, QD
     Route: 065
  118. THIAMINE [Suspect]
     Active Substance: THIAMINE
     Dosage: 300 MILLIGRAM ONCE DAILY, DOSAGE TEXT: UNK UNK, QD;
     Route: 065
  119. THIAMINE MONONITRATE [Suspect]
     Active Substance: THIAMINE MONONITRATE
     Indication: Hypovitaminosis
     Dosage: 300 MG ONCE DAILY, DOSAGE TEXT: 300 MG, QD
     Route: 065
  120. THIAMINE MONONITRATE [Suspect]
     Active Substance: THIAMINE MONONITRATE
     Indication: Hypovitaminosis
     Dosage: 300 MILLIGRAM, QD/300 MG,1 D
     Route: 065
  121. THIAMINE MONONITRATE [Suspect]
     Active Substance: THIAMINE MONONITRATE
     Dosage: 300 MG, QD
     Route: 065
  122. ENSURE [Suspect]
     Active Substance: AMINO ACIDS\DEXTROSE\ELECTROLYTES NOS\SOYBEAN OIL\VITAMINS
     Indication: Nutritional supplementation
     Dosage: TABLETS 3UNK, TABLETS (1 D)
     Route: 065
  123. ENSURE [Suspect]
     Active Substance: AMINO ACIDS\DEXTROSE\ELECTROLYTES NOS\SOYBEAN OIL\VITAMINS
     Dosage: TABLETS1 DF
     Route: 065
  124. MOVICOL [Suspect]
     Active Substance: POLYETHYLENE GLYCOL 3350\POTASSIUM CHLORIDE\SODIUM BICARBONATE\SODIUM CHLORIDE
     Indication: Product used for unknown indication
     Dosage: UNK
     Route: 065
  125. CALCIUM CARBONATE [Suspect]
     Active Substance: CALCIUM CARBONATE
     Indication: Mineral supplementation
     Dosage: 8 DF, QD
     Route: 065
  126. CALCIUM CARBONATE [Suspect]
     Active Substance: CALCIUM CARBONATE
     Indication: Mineral supplementation
     Dosage: 1 DF, (DOSAGE TEXT: 1 UNK)
     Route: 065
  127. CALCIUM CARBONATE [Suspect]
     Active Substance: CALCIUM CARBONATE
     Dosage: 1 UNK;
     Route: 065
  128. THIAMINE HYDROCHLORIDE [Suspect]
     Active Substance: THIAMINE HYDROCHLORIDE
     Indication: Nutritional supplementation
     Dosage: 1 DF, DOSAGE FORM: TABLET
     Route: 065
  129. THIAMINE HYDROCHLORIDE [Suspect]
     Active Substance: THIAMINE HYDROCHLORIDE
     Dosage: DOSAGE FORM: TABLET. 300MG,QD
     Route: 065
  130. TRIBASIC CALCIUM PHOSPHATE [Suspect]
     Active Substance: TRIBASIC CALCIUM PHOSPHATE
     Indication: Mineral supplementation
     Dosage: UNK
     Route: 065
  131. ASCORBIC ACID [Suspect]
     Active Substance: ASCORBIC ACID
     Indication: Product used for unknown indication
     Dosage: 1 DOSAGE FORM, ONCE A DAY
     Route: 065
  132. ASCORBIC ACID [Suspect]
     Active Substance: ASCORBIC ACID
     Dosage: 1 {DF}, QD
     Route: 065
  133. BIOTIN [Suspect]
     Active Substance: BIOTIN
     Indication: Product used for unknown indication
     Dosage: 3 DOSAGE FORM, TABLETS 3UNK
     Route: 065
  134. BIOTIN [Suspect]
     Active Substance: BIOTIN
     Dosage: 3 {DF}
     Route: 065
  135. FOLIC ACID [Suspect]
     Active Substance: FOLIC ACID
     Indication: Product used for unknown indication
     Dosage: 1 DOSAGE FORM, ONCE A DAY
     Route: 065
  136. FOLIC ACID [Suspect]
     Active Substance: FOLIC ACID
     Dosage: UNK
     Route: 065
  137. RIBOFLAVIN [Suspect]
     Active Substance: RIBOFLAVIN
     Indication: Product used for unknown indication
     Dosage: 1 DOSAGE FORM, ONCE A DAY
     Route: 065
  138. MAGNESIUM CHLORIDE [Suspect]
     Active Substance: MAGNESIUM CHLORIDE
     Indication: Product used for unknown indication
     Dosage: 1 DOSAGE FORM, ONCE A DAY
     Route: 065
  139. SODIUM POLYMETAPHOSPHATE [Suspect]
     Active Substance: SODIUM POLYMETAPHOSPHATE
     Indication: Product used for unknown indication
     Dosage: 3 DOSAGE FORM, TABLETS 3UNK
     Route: 065
  140. SODIUM POLYMETAPHOSPHATE [Suspect]
     Active Substance: SODIUM POLYMETAPHOSPHATE
     Dosage: UNK
     Route: 065
  141. POTASSIUM IODIDE [Suspect]
     Active Substance: POTASSIUM IODIDE
     Indication: Product used for unknown indication
     Dosage: 1 DOSAGE FORM, ONCE A DAY
     Route: 065
  142. POTASSIUM CHLORIDE [Suspect]
     Active Substance: POTASSIUM CHLORIDE
     Indication: Product used for unknown indication
     Dosage: 1 DOSAGE FORM, ONCE A DAY
     Route: 065
  143. CUPRIC SULFATE ANHYDROUS [Suspect]
     Active Substance: CUPRIC SULFATE ANHYDROUS
     Indication: Product used for unknown indication
     Dosage: 1 DOSAGE FORM, ONCE A DAY
     Route: 065
  144. CUPRIC SULFATE ANHYDROUS [Suspect]
     Active Substance: CUPRIC SULFATE ANHYDROUS
     Dosage: 1 DF ONCE DAILY, DOSAGE TEXT: 1 DF, QD
     Route: 065
  145. CYANOCOBALAMIN [Suspect]
     Active Substance: CYANOCOBALAMIN
     Indication: Product used for unknown indication
     Dosage: 1 DOSAGE FORM, ONCE A DAY, DOSAGE TEXT: 1 DF. QD
     Route: 065
  146. PYRIDOXINE HYDROCHLORIDE [Suspect]
     Active Substance: PYRIDOXINE HYDROCHLORIDE
     Indication: Product used for unknown indication
     Dosage: 1 DOSAGE FORM, ONCE A DAY
     Route: 065
  147. LINOLEIC ACID [Suspect]
     Active Substance: LINOLEIC ACID
     Indication: Product used for unknown indication
     Dosage: 3 DOSAGE FORM, TABLETS 3UNK
     Route: 065
  148. MANGANESE CHLORIDE [Suspect]
     Active Substance: MANGANESE CHLORIDE
     Indication: Product used for unknown indication
     Dosage: 1 DOSAGE FORM, ONCE A DAY
     Route: 065
  149. FERROUS SULFATE [Suspect]
     Active Substance: FERROUS SULFATE
     Indication: Product used for unknown indication
     Dosage: 1 DOSAGE FORM, ONCE A DAY
     Route: 065
  150. POTASSIUM CITRATE [Suspect]
     Active Substance: POTASSIUM CITRATE
     Indication: Product used for unknown indication
     Dosage: 1 DOSAGE FORM, ONCE A DAY
     Route: 065
  151. .ALPHA.-TOCOPHEROL ACETATE [Suspect]
     Active Substance: .ALPHA.-TOCOPHEROL ACETATE
     Indication: Product used for unknown indication
     Dosage: 1 DOSAGE FORM, ONCE A DAY
     Route: 065
  152. PHYTONADIONE [Suspect]
     Active Substance: PHYTONADIONE
     Indication: Product used for unknown indication
     Dosage: 1 DOSAGE FORM, ONCE A DAY
     Route: 065
  153. PHYTONADIONE [Suspect]
     Active Substance: PHYTONADIONE
     Dosage: UNK
     Route: 065
  154. SOYBEAN OIL [Suspect]
     Active Substance: SOYBEAN OIL
     Indication: Product used for unknown indication
     Dosage: 1 DOSAGE FORM, ONCE A DAY
     Route: 065
  155. CALCIUM PANTOTHENATE [Suspect]
     Active Substance: CALCIUM PANTOTHENATE
     Indication: Product used for unknown indication
     Dosage: 1 DOSAGE FORM, ONCE A DAY
     Route: 065
  156. ZINC SULFATE [Suspect]
     Active Substance: ZINC SULFATE
     Indication: Product used for unknown indication
     Dosage: 1 DOSAGE FORM, ONCE A DAY
     Route: 065
  157. VITAMIN A PALMITATE [Suspect]
     Active Substance: VITAMIN A PALMITATE
     Indication: Product used for unknown indication
     Dosage: 1 DOSAGE FORM, ONCE A DAY
     Route: 065
  158. ERGOCALCIFEROL [Suspect]
     Active Substance: ERGOCALCIFEROL
     Indication: Product used for unknown indication
     Dosage: 1 DOSAGE FORM, ONCE A DAY
     Route: 065
  159. ERGOCALCIFEROL [Suspect]
     Active Substance: ERGOCALCIFEROL
     Dosage: UNK
     Route: 065
  160. PROTEIN [Suspect]
     Active Substance: PROTEIN
     Indication: Product used for unknown indication
     Dosage: 1 DOSAGE FORM, ONCE A DAY
     Route: 065
  161. NICOTINAMIDE [Suspect]
     Active Substance: NIACINAMIDE
     Indication: Product used for unknown indication
     Dosage: 1 DOSAGE FORM, ONCE A DAY
     Route: 065
  162. THIAMINE MONONITRATE [Suspect]
     Active Substance: THIAMINE MONONITRATE
     Indication: Hypovitaminosis
     Dosage: 300 MILLIGRAM, ONCE A DAY, DOSAGE TEXT: 300 MILLIGRAM, QD
     Route: 065
  163. THIAMINE MONONITRATE [Suspect]
     Active Substance: THIAMINE MONONITRATE
     Indication: Hypovitaminosis
     Dosage: 300 MILLIGRAM, QD
     Route: 065
  164. ARCOXIA [Suspect]
     Active Substance: ETORICOXIB
     Indication: Product used for unknown indication
     Dosage: DOSAGE TEXT: UNK
     Route: 065
  165. ARCOXIA [Suspect]
     Active Substance: ETORICOXIB
     Dosage: UNK
     Route: 065
  166. CALCIUM PHOSPHATE [Suspect]
     Active Substance: CALCIUM PHOSPHATE
     Indication: Mineral supplementation
     Dosage: 8 DOSAGE FORMS, PRN (DOSAGE TEXT: 8 DF)
     Route: 065
  167. CALCIUM PHOSPHATE [Suspect]
     Active Substance: CALCIUM PHOSPHATE
     Dosage: DOSE NOT REPORTED, ONCE A DAY (DOSAGE TEXT: UNK)
     Route: 065
  168. COCODAMOL [Suspect]
     Active Substance: ACETAMINOPHEN\CODEINE PHOSPHATE
     Indication: Product used for unknown indication
     Dosage: (DOSAGE TEXT CODEINE PHOSPHATE WITH PARACETAMOL)
     Route: 065
  169. CALCIUM CARBONATE\CHOLECALCIFEROL [Suspect]
     Active Substance: CALCIUM CARBONATE\CHOLECALCIFEROL
     Indication: Mineral supplementation
     Dosage: 1 DOSAGE FORM, DOSAGE TEXT: 1 DF
     Route: 065
  170. CALCIUM CARBONATE\CHOLECALCIFEROL [Suspect]
     Active Substance: CALCIUM CARBONATE\CHOLECALCIFEROL
     Dosage: 2 DOSAGE FORM, DOSAGE TEXT: 2 DF
     Route: 065
  171. CALCIUM CARBONATE\CHOLECALCIFEROL [Suspect]
     Active Substance: CALCIUM CARBONATE\CHOLECALCIFEROL
     Dosage: 8 DOSAGE FORM ONCE DAILY, DOSAGE TEXT: 8 DF, QD
     Route: 065
  172. CALCIUM CARBONATE\CHOLECALCIFEROL [Suspect]
     Active Substance: CALCIUM CARBONATE\CHOLECALCIFEROL
     Dosage: 8 DOSAGE FORM, DOSAGE TEXT: 8 DF
     Route: 065
  173. ACETAMINOPHEN [Suspect]
     Active Substance: ACETAMINOPHEN
     Dosage: UNK
     Route: 065
  174. ZINC SULFATE [Suspect]
     Active Substance: ZINC SULFATE
     Indication: Product used for unknown indication
     Dosage: 1 DOSAGE FORM, ONCE DAILY
     Route: 065
  175. FERROUS SULFATE [Suspect]
     Active Substance: FERROUS SULFATE
     Dosage: 1 DF
     Route: 065
  176. ETORICOXIB [Suspect]
     Active Substance: ETORICOXIB
     Indication: Product used for unknown indication
     Dosage: DOSAGE TEXT: UNK; ;
     Route: 065
  177. CODEINE PHOSPHATE [Suspect]
     Active Substance: CODEINE PHOSPHATE
     Dosage: (ADDITIONAL INFORMATION ON DRUG: ADDITIONAL INFO: CODEINE PHOSPHATE (PLUS))
     Route: 065
  178. DOMPERIDONE MALEATE [Suspect]
     Active Substance: DOMPERIDONE MALEATE
     Indication: Supportive care
     Dosage: 8 MG, ONCE DAILY (DOSAGE TEXT: 8 MILLIGRAM, QD)
     Route: 048
     Dates: start: 20200825
  179. DOMPERIDONE MALEATE [Suspect]
     Active Substance: DOMPERIDONE MALEATE
     Indication: Product used for unknown indication
     Dosage: 30 MG ONCE DAILY (DOSAGE TEXT: 30 MG, QD)
     Route: 065
     Dates: start: 20200825
  180. DOMPERIDONE MALEATE [Suspect]
     Active Substance: DOMPERIDONE MALEATE
     Dosage: 30 MG ONCE DAILY (DOSAGE TEXT: 30 MG, 1D (QD) (AS NECESSARY))
     Route: 048
     Dates: start: 20200825
  181. DOMPERIDONE MALEATE [Suspect]
     Active Substance: DOMPERIDONE MALEATE
     Dosage: 30 MG ONCE DAILY (DOSAGE TEXT: 30 MILLIGRAM, QD (30 MG, QD (PRN (30 MG,1 D)))
     Route: 048
     Dates: start: 20200825
  182. DOMPERIDONE MALEATE [Suspect]
     Active Substance: DOMPERIDONE MALEATE
     Dosage: UNK
     Route: 065
  183. CHOLECALCIFEROL [Suspect]
     Active Substance: CHOLECALCIFEROL
     Indication: Mineral supplementation
     Dosage: 1 DF ONCE DAILY, DOSAGE TEXT: 1 DF, QD, (QD(UNK, QD, (UNK UNK, QD) )
     Route: 065
  184. CHOLECALCIFEROL [Suspect]
     Active Substance: CHOLECALCIFEROL
     Indication: Mineral supplementation
     Dosage: AT UNSEPCIFIED DOSE ONCE DAILY, DOSAGE TEXT: UNK UNK, QD;
     Route: 065
  185. CHOLECALCIFEROL [Suspect]
     Active Substance: CHOLECALCIFEROL
     Dosage: 8 DF ONCE DAILY, DOSAGE TEXT: 8 DF, QD
     Route: 065
  186. UNSPECIFIED INGREDIENT [Suspect]
     Active Substance: UNSPECIFIED INGREDIENT
     Dosage: DOSAGE TEXT: UNK UNK, QD; ;
     Route: 065
  187. CALCIUM CARBONATE\CHOLECALCIFEROL [Suspect]
     Active Substance: CALCIUM CARBONATE\CHOLECALCIFEROL
     Indication: Product used for unknown indication
     Dosage: 2 DOSAGE FORM ONCE DAILY (DOSAGE TEXT: TABLET 2 (2 DOSAGE FORMS) (2 DOSAGE FORMS,1 D) (2 DOSAGE FORM
     Route: 065
  188. CALCIUM CARBONATE [Suspect]
     Active Substance: CALCIUM CARBONATE
     Indication: Product used for unknown indication
     Dosage: 2 DOSAGE FORM, PRN
     Route: 065
  189. CALCIUM CARBONATE [Suspect]
     Active Substance: CALCIUM CARBONATE
     Dosage: ONCE DAILY, (DOSAGE TEXT: 1 DOSGE FORM, QD)
     Route: 065
  190. CALCIUM CARBONATE [Suspect]
     Active Substance: CALCIUM CARBONATE
     Dosage: 1 DOSAGE FORM, PRN
     Route: 065
  191. CALCIUM CARBONATE [Suspect]
     Active Substance: CALCIUM CARBONATE
     Dosage: 2 DOSAGE FORM, (DOSAGE TEXT: 2 DOSAGE FORM)
     Route: 065
  192. CALCIUM CARBONATE [Suspect]
     Active Substance: CALCIUM CARBONATE
     Dosage: 1 DOSAGE FORM (DOSAGE TEXT: 1 DF)
     Route: 065

REACTIONS (9)
  - Barrett^s oesophagus [Unknown]
  - Abdominal distension [Unknown]
  - Vitamin B12 deficiency [Unknown]
  - Regurgitation [Unknown]
  - Dyspepsia [Unknown]
  - Neck pain [Unknown]
  - Oropharyngeal discomfort [Unknown]
  - Eructation [Unknown]
  - Hypersensitivity [Recovered/Resolved]

NARRATIVE: CASE EVENT DATE: 20200825
